FAERS Safety Report 13654298 (Version 1)
Quarter: 2017Q2

REPORT INFORMATION
  Report Type: Spontaneous
  Country: US (occurrence: US)
  Receive Date: 20170614
  Receipt Date: 20170614
  Transmission Date: 20170830
  Serious: No
  Sender: FDA-Public Use
  Company Number: US-BIOGEN-2013BI085963

PATIENT
  Sex: Male

DRUGS (2)
  1. AVONEX [Suspect]
     Active Substance: INTERFERON BETA-1A
     Route: 030
     Dates: start: 20120913, end: 201308
  2. AVONEX [Suspect]
     Active Substance: INTERFERON BETA-1A
     Indication: MULTIPLE SCLEROSIS
     Route: 030
     Dates: start: 20120829

REACTIONS (12)
  - Fatigue [Unknown]
  - Haemorrhage [Unknown]
  - Myalgia [Unknown]
  - Irritability [Unknown]
  - Hyperhidrosis [Unknown]
  - Musculoskeletal stiffness [Unknown]
  - Injection site pain [Recovered/Resolved]
  - Pain in extremity [Unknown]
  - Loss of consciousness [Unknown]
  - Influenza like illness [Unknown]
  - Anxiety [Unknown]
  - Muscle spasms [Unknown]
